FAERS Safety Report 6094146-2 (Version None)
Quarter: 2009Q1

REPORT INFORMATION
  Report Type: 
  Country: None (occurrence: None)
  Receive Date: 20090226
  Receipt Date: 20090223
  Transmission Date: 20090719
  Serious: Yes (Life-Threatening, Hospitalization)
  Sender: FDA-Public Use
  Company Number: FR-PFIZER INC-2009166038

PATIENT

DRUGS (17)
  1. TAHOR [Suspect]
     Dosage: 10 MG, 1X/DAY
     Route: 048
     Dates: start: 20070417, end: 20081219
  2. HEXAQUINE [Suspect]
     Indication: MUSCLE SPASMS
     Dosage: 1 DF, 3X/DAY
     Route: 048
     Dates: start: 20080529, end: 20081219
  3. INIPOMP [Suspect]
     Dosage: 40 MG, 1X/DAY
     Route: 048
     Dates: start: 20080529, end: 20081219
  4. KEPPRA [Suspect]
     Indication: CONVULSION
     Dosage: 750 MG, 1X/DAY
     Route: 048
     Dates: start: 20080603
  5. COLCHICINE [Suspect]
     Dosage: 1 DF, AS NEEDED
     Route: 048
     Dates: start: 20080530, end: 20081219
  6. FUROSEMIDE [Suspect]
     Dosage: 250 MG, 1X/DAY
     Route: 048
     Dates: start: 20080601
  7. MONO-TILDIEM [Suspect]
     Dosage: 200 MG, 1X/DAY
     Route: 048
     Dates: start: 20070418
  8. VASTAREL [Suspect]
     Dosage: 1 DF, 1X/DAY
     Route: 048
     Dates: start: 20080530, end: 20081219
  9. ENGERIX-B [Suspect]
     Dosage: 20 UG/ML, UNK
     Dates: start: 20080701
  10. CALCIDOSE [Concomitant]
  11. OXYNORM [Concomitant]
  12. RENAGEL [Concomitant]
     Dosage: UNK
  13. SPECIAFOLDINE [Concomitant]
  14. ZOPHREN [Concomitant]
  15. GAVISCON [Concomitant]
  16. FORLAX [Concomitant]
  17. ARANESP [Concomitant]

REACTIONS (1)
  - THROMBOCYTOPENIC PURPURA [None]
